FAERS Safety Report 8349930 (Version 2)
Quarter: 2012Q4

REPORT INFORMATION
  Report Type: 
  Country: BR (occurrence: BR)
  Receive Date: 20120123
  Receipt Date: 20121018
  Transmission Date: 20130627
  Serious: Yes (Hospitalization)
  Sender: FDA-Public Use
  Company Number: BR-ASTRAZENECA-2012SE02731

PATIENT
  Age: 50 Year
  Sex: Male
  Weight: 86 kg

DRUGS (5)
  1. ATACAND COMB [Suspect]
     Indication: HYPERTENSION
     Dosage: 16+5 MGS DAILY
     Route: 048
     Dates: start: 201103, end: 201111
  2. ATACAND [Suspect]
     Indication: HYPERTENSION
     Route: 048
     Dates: start: 201111
  3. SELOZOK [Suspect]
     Indication: HYPERTENSION
     Route: 048
     Dates: start: 201111
  4. OMEPRAZOLE [Suspect]
     Indication: GASTRITIS
     Route: 048
  5. MAREVAN [Concomitant]

REACTIONS (2)
  - Cerebrovascular accident [Recovered/Resolved]
  - Hypercoagulation [Not Recovered/Not Resolved]
